FAERS Safety Report 20623840 (Version 2)
Quarter: 2022Q1

REPORT INFORMATION
  Report Type: Spontaneous
  Country: AT (occurrence: AT)
  Receive Date: 20220322
  Receipt Date: 20220324
  Transmission Date: 20220423
  Serious: Yes (Life-Threatening, Other)
  Sender: FDA-Public Use
  Company Number: AT-009507513-2203AUT005227

PATIENT
  Age: 56 Year
  Sex: Female

DRUGS (1)
  1. KEYTRUDA [Suspect]
     Active Substance: PEMBROLIZUMAB
     Indication: Endometrial cancer metastatic
     Dosage: 200 MILLIGRAM EVERY 3 WEEKS
     Dates: start: 20211104, end: 20211217

REACTIONS (5)
  - Serum ferritin increased [Recovering/Resolving]
  - Haemophagocytic lymphohistiocytosis [Recovering/Resolving]
  - Nephritis [Recovering/Resolving]
  - Hepatitis [Recovering/Resolving]
  - Inappropriate schedule of product administration [Unknown]
